FAERS Safety Report 10877608 (Version 2)
Quarter: 2015Q1

REPORT INFORMATION
  Report Type: Spontaneous
  Country: US (occurrence: US)
  Receive Date: 20150302
  Receipt Date: 20150318
  Transmission Date: 20150721
  Serious: Yes (Death, Hospitalization, Other)
  Sender: FDA-Public Use
  Company Number: US-AMGEN-USASP2015017463

PATIENT
  Age: 65 Year
  Sex: Female
  Weight: 66.67 kg

DRUGS (1)
  1. PROLIA [Suspect]
     Active Substance: DENOSUMAB
     Indication: OSTEOPOROSIS
     Dosage: 60 UNK, Q6MO
     Route: 058
     Dates: start: 201409

REACTIONS (5)
  - Myocardial infarction [Fatal]
  - Pneumothorax [Unknown]
  - Pseudomonas infection [Unknown]
  - Chronic obstructive pulmonary disease [Unknown]
  - Respiratory failure [Fatal]
